FAERS Safety Report 10810081 (Version 1)
Quarter: 2015Q1

REPORT INFORMATION
  Report Type: Spontaneous
  Country: US (occurrence: None)
  Receive Date: 20150213
  Receipt Date: 20150213
  Transmission Date: 20150721
  Serious: No
  Sender: FDA-Public Use
  Company Number: None

PATIENT
  Age: 83 Year
  Sex: Female

DRUGS (1)
  1. LISINOPRIL. [Suspect]
     Active Substance: LISINOPRIL
     Indication: BLOOD PRESSURE INCREASED
     Dosage: 10 MG 1 PILL MORNING BY MOUTH
     Route: 048
     Dates: start: 20140829, end: 201411

REACTIONS (3)
  - Retching [None]
  - Cough [None]
  - Throat irritation [None]

NARRATIVE: CASE EVENT DATE: 201411
